FAERS Safety Report 4337170-X (Version None)
Quarter: 2004Q1

REPORT INFORMATION
  Report Type: 
  Country: None (occurrence: None)
  Receive Date: 20040329
  Receipt Date: 20040217
  Transmission Date: 20041129
  Serious: No
  Sender: FDA-Public Use
  Company Number: USA040259580

PATIENT
  Age: 10 Year
  Weight: 56 kg

DRUGS (1)
  1. STRATTERA [Suspect]
     Indication: ATTENTION DEFICIT/HYPERACTIVITY DISORDER
     Dosage: 40 MG /1 DAY
     Dates: start: 20040212

REACTIONS (8)
  - ABDOMINAL PAIN [None]
  - ABNORMAL BEHAVIOUR [None]
  - BODY TEMPERATURE INCREASED [None]
  - CONSTIPATION [None]
  - DIARRHOEA [None]
  - FATIGUE [None]
  - HOT FLUSH [None]
  - MUSCULAR WEAKNESS [None]
